FAERS Safety Report 5993361-3 (Version None)
Quarter: 2008Q4

REPORT INFORMATION
  Report Type: 
  Country: None (occurrence: None)
  Receive Date: 20081209
  Receipt Date: 20080909
  Transmission Date: 20090506
  Serious: No
  Sender: FDA-Public Use
  Company Number: 08H-163-0314871-00

PATIENT
  Age: 62 Year
  Sex: Female
  Weight: 83.9154 kg

DRUGS (3)
  1. DEMEROL [Suspect]
     Dosage: ONCE, INTRAVENOUS
     Route: 042
     Dates: start: 20080903, end: 20080903
  2. VERSED [Concomitant]
  3. LISINOPRIL [Concomitant]

REACTIONS (2)
  - ERYTHEMA [None]
  - PRURITUS [None]
